FAERS Safety Report 6149587-1 (Version None)
Quarter: 2009Q2

REPORT INFORMATION
  Report Type: 
  Country: None (occurrence: None)
  Receive Date: 20090406
  Receipt Date: 20090406
  Transmission Date: 20091009
  Serious: Yes (Other)
  Sender: FDA-Public Use
  Company Number: None

PATIENT
  Age: 38 Year
  Sex: Female
  Weight: 113.3993 kg

DRUGS (1)
  1. MIRENA [Suspect]
     Indication: CONTRACEPTION
     Dosage: INTRA UTERINE DEVICE EVERY 5 YEARS INTRA-UTERINE
     Route: 015
     Dates: start: 20061103, end: 20090330

REACTIONS (12)
  - ALOPECIA [None]
  - ANXIETY [None]
  - CHEST PAIN [None]
  - DIZZINESS [None]
  - DYSPNOEA [None]
  - HYPERTENSION [None]
  - MENSTRUATION IRREGULAR [None]
  - MIGRAINE [None]
  - NAUSEA [None]
  - OVARIAN CYST [None]
  - PALPITATIONS [None]
  - UTERINE LEIOMYOMA [None]
